FAERS Safety Report 8563462-4 (Version None)
Quarter: 2012Q3

REPORT INFORMATION
  Report Type: 
  Country: None (occurrence: None)
  Receive Date: 20120802
  Receipt Date: 20120727
  Transmission Date: 20120928
  Serious: Yes (Hospitalization)
  Sender: FDA-Public Use
  Company Number: FR-SANOFI-AVENTIS-2012SA053587

PATIENT
  Age: 74 Year
  Sex: Male

DRUGS (5)
  1. ATORVASTATIN [Concomitant]
     Route: 048
  2. FUROSEMIDE [Suspect]
     Dosage: MORNING
     Route: 048
     Dates: start: 20120716
  3. PERINDOPRIL ERBUMINE [Concomitant]
     Route: 048
  4. ESOMEPRAZOLE [Concomitant]
     Route: 048
  5. BISOPROLOL FUMARATE [Concomitant]
     Route: 048
     Dates: start: 20120726

REACTIONS (2)
  - SWELLING [None]
  - COMA [None]
